FAERS Safety Report 18653037 (Version 1)
Quarter: 2020Q4

REPORT INFORMATION
  Report Type: Other
  Country: US (occurrence: US)
  Receive Date: 20201222
  Receipt Date: 20201222
  Transmission Date: 20210114
  Serious: No
  Sender: FDA-Public Use
  Company Number: US-ROCHE-2737656

PATIENT
  Age: 57 Year
  Sex: Female
  Weight: 70.37 kg

DRUGS (8)
  1. PAXIL [Concomitant]
     Active Substance: PAROXETINE HYDROCHLORIDE
     Indication: DEPRESSION
     Dosage: IN THE EVENING
     Route: 048
     Dates: start: 199911
  2. OCREVUS [Suspect]
     Active Substance: OCRELIZUMAB
     Indication: RELAPSING-REMITTING MULTIPLE SCLEROSIS
     Dosage: ONGOING YES
     Route: 042
     Dates: start: 201905
  3. VITAMIN C;ZINC [Concomitant]
     Dosage: VITAMIN C 1000MG
     Route: 048
  4. MAGNESIUM [Concomitant]
     Active Substance: MAGNESIUM
     Indication: MUSCLE SPASTICITY
     Route: 048
     Dates: start: 2016
  5. MUCINEX [Concomitant]
     Active Substance: GUAIFENESIN
     Route: 048
  6. LOSARTAN. [Concomitant]
     Active Substance: LOSARTAN
     Indication: HYPERTENSION
     Dosage: IN THE MORNING
     Route: 048
  7. ALAVERT ALLERGY [Concomitant]
     Active Substance: LORATADINE
     Route: 048
  8. PAXIL [Concomitant]
     Active Substance: PAROXETINE HYDROCHLORIDE
     Indication: ANXIETY

REACTIONS (3)
  - COVID-19 [Recovered/Resolved]
  - Anosmia [Recovered/Resolved]
  - Ageusia [Recovered/Resolved]

NARRATIVE: CASE EVENT DATE: 20201115
